FAERS Safety Report 6386460-8 (Version None)
Quarter: 2009Q4

REPORT INFORMATION
  Report Type: 
  Country: None (occurrence: None)
  Receive Date: 20091002
  Receipt Date: 20090521
  Transmission Date: 20100525
  Serious: No
  Sender: FDA-Public Use
  Company Number: US-ASTRAZENECA-2009UW13057

PATIENT
  Age: 66 Year
  Sex: Female
  Weight: 61.2 kg

DRUGS (1)
  1. ARIMIDEX [Suspect]
     Indication: BREAST CANCER
     Route: 048
     Dates: start: 20090101

REACTIONS (6)
  - ARTHRALGIA [None]
  - DEPRESSION [None]
  - LIBIDO DECREASED [None]
  - ORAL PAIN [None]
  - PAIN IN EXTREMITY [None]
  - TRIGGER FINGER [None]
